FAERS Safety Report 4304468-0 (Version None)
Quarter: 2004Q1

REPORT INFORMATION
  Report Type: 
  Country: None (occurrence: None)
  Receive Date: 20040226
  Receipt Date: 20040219
  Transmission Date: 20041129
  Serious: Yes (Hospitalization, Other)
  Sender: FDA-Public Use
  Company Number: US-BRISTOL-MYERS SQUIBB COMPANY-12511309

PATIENT
  Age: 27 Year
  Sex: Female
  Weight: 62 kg

DRUGS (1)
  1. COUMADIN [Suspect]
     Indication: DEEP VEIN THROMBOSIS
     Dosage: 07/01: 2 MG; 08/01: 4 MG MWF + 6 MG X 2 DYS/WK; 5 MG DAILY X PAST 7 MONTHS
     Route: 048
     Dates: start: 20010701

REACTIONS (3)
  - ABDOMINAL PAIN UPPER [None]
  - DEEP VEIN THROMBOSIS [None]
  - SYSTEMIC LUPUS ERYTHEMATOSUS [None]
